FAERS Safety Report 8967828 (Version 1)
Quarter: 2012Q4

REPORT INFORMATION
  Report Type: 
  Country: US (occurrence: US)
  Receive Date: 20121217
  Receipt Date: 20121217
  Transmission Date: 20130627
  Serious: Yes (Other)
  Sender: FDA-Public Use
  Company Number: US-MERCK-1008USA00783

PATIENT
  Age: 60 Year
  Sex: Female
  Weight: 94.7 kg

DRUGS (14)
  1. PRINIVIL [Suspect]
     Indication: HYPERTENSION
     Dosage: 20 mg, qd
     Route: 048
     Dates: start: 200301, end: 20090919
  2. BLINDED THERAPY [Suspect]
     Indication: HYPERCHOLESTEROLAEMIA
     Route: 048
     Dates: start: 20081028, end: 20090318
  3. BLINDED THERAPY [Suspect]
     Indication: TYPE V HYPERLIPIDAEMIA
     Route: 048
     Dates: start: 20090327, end: 20090704
  4. BLINDED THERAPY [Suspect]
     Route: 048
     Dates: start: 20090709
  5. PLACEBO [Suspect]
     Route: 048
     Dates: start: 20081007, end: 20081027
  6. OXCARBAZEPINE [Concomitant]
     Indication: TRIGEMINAL NEURALGIA
     Dosage: 300 mg, bid
     Route: 048
     Dates: start: 200501
  7. HYDROCHLOROTHIAZIDE [Concomitant]
     Indication: HYPERTENSION
     Dosage: 12.5 mg, qd
     Route: 048
     Dates: start: 200301, end: 20091208
  8. METFORMIN [Concomitant]
     Indication: TYPE 2 DIABETES MELLITUS
     Dosage: 850 mg, bid
     Route: 048
     Dates: start: 200701
  9. GLIPIZIDE [Concomitant]
     Dosage: 10 mg, qd
     Route: 048
     Dates: start: 200701
  10. NEURONTIN [Concomitant]
     Indication: NEUROPATHY PERIPHERAL
     Dosage: 600 mg, tid
     Route: 048
     Dates: start: 200201
  11. ALBUTEROL [Concomitant]
     Indication: WHEEZING
     Dosage: 2 DF, bid
     Route: 055
     Dates: start: 20081028
  12. PRILOSEC [Concomitant]
     Indication: ABDOMINAL PAIN UPPER
     Dosage: 15 mg, bid
     Route: 048
     Dates: start: 20090720, end: 20091208
  13. LORATADINE [Concomitant]
     Indication: ALLERGY PROPHYLAXIS
     Dosage: 10 mg, qd
     Route: 048
     Dates: start: 200908, end: 20091205
  14. LIPITOR [Concomitant]
     Indication: HYPERLIPIDAEMIA
     Dosage: 20 mg, qd
     Route: 048
     Dates: start: 20090621, end: 20091203

REACTIONS (1)
  - Angioedema [Recovered/Resolved]
